FAERS Safety Report 9639419 (Version 6)
Quarter: 2014Q3

REPORT INFORMATION
  Report Type: Report from Study
  Country: GB (occurrence: GB)
  Receive Date: 20131022
  Receipt Date: 20140813
  Transmission Date: 20150326
  Serious: Yes (Hospitalization, Other)
  Sender: FDA-Public Use
  Company Number: GB-ROCHE-1155308

PATIENT
  Age: 87 Year
  Sex: Female

DRUGS (9)
  1. RANIBIZUMAB [Suspect]
     Active Substance: RANIBIZUMAB
     Indication: PRODUCT USED FOR UNKNOWN INDICATION
     Route: 050
     Dates: start: 20090304
  2. RANIBIZUMAB [Suspect]
     Active Substance: RANIBIZUMAB
     Route: 050
     Dates: start: 20130606, end: 20130717
  3. RANIBIZUMAB [Suspect]
     Active Substance: RANIBIZUMAB
     Route: 050
     Dates: start: 20130717, end: 20130717
  4. CALCITRIOL. [Concomitant]
     Active Substance: CALCITRIOL
  5. SIMVASTATIN. [Concomitant]
     Active Substance: SIMVASTATIN
  6. OMEPRAZOLE. [Concomitant]
     Active Substance: OMEPRAZOLE
  7. RANIBIZUMAB [Suspect]
     Active Substance: RANIBIZUMAB
     Route: 050
     Dates: start: 20110506
  8. FLUVOXAMINE [Concomitant]
     Active Substance: FLUVOXAMINE
  9. CLOPIDOGREL [Concomitant]
     Active Substance: CLOPIDOGREL BISULFATE

REACTIONS (2)
  - Angina pectoris [Unknown]
  - Angina unstable [Recovered/Resolved]

NARRATIVE: CASE EVENT DATE: 20120727
